FAERS Safety Report 8566712-3 (Version None)
Quarter: 2012Q3

REPORT INFORMATION
  Report Type: 
  Country: None (occurrence: None)
  Receive Date: 20120803
  Receipt Date: 20120726
  Transmission Date: 20120928
  Serious: Yes (Other)
  Sender: FDA-Public Use
  Company Number: US-JNJFOC-20120609040

PATIENT
  Sex: Female
  Weight: 100.25 kg

DRUGS (16)
  1. BENEFIBER [Concomitant]
  2. MELOXICAM [Concomitant]
  3. NEXIUM [Concomitant]
  4. VITAMIN D [Concomitant]
  5. FLUOXETINE HCL [Concomitant]
  6. CARAFATE [Concomitant]
     Route: 065
  7. REMICADE [Suspect]
     Indication: COLITIS ULCERATIVE
     Route: 042
     Dates: start: 20110907
  8. HYDROCODONE BITARTRATE [Concomitant]
  9. ZOLPIDEM [Concomitant]
  10. VITAMIN B-12 [Concomitant]
     Route: 065
  11. GLUCOSAMINE / CHONDROITIN [Concomitant]
  12. SUCRALFATE [Concomitant]
  13. REMICADE [Suspect]
     Indication: CROHN'S DISEASE
     Route: 042
     Dates: start: 20110907
  14. REMICADE [Suspect]
     Route: 042
     Dates: start: 20120612, end: 20120612
  15. REMICADE [Suspect]
     Route: 042
     Dates: start: 20120612, end: 20120612
  16. IMODIUM [Concomitant]

REACTIONS (9)
  - BRONCHOSPASM [None]
  - SWOLLEN TONGUE [None]
  - STOMATITIS [None]
  - MUSCLE SPASMS [None]
  - INFUSION RELATED REACTION [None]
  - BACK PAIN [None]
  - COUGH [None]
  - FLUSHING [None]
  - NAUSEA [None]
